FAERS Safety Report 8561814 (Version 2)
Quarter: 2012Q4

REPORT INFORMATION
  Report Type: 
  Country: US (occurrence: US)
  Receive Date: 20120515
  Receipt Date: 20121108
  Transmission Date: 20130627
  Serious: Yes (Hospitalization, Other)
  Sender: FDA-Public Use
  Company Number: US-BAYER-2012-044607

PATIENT
  Age: 28 Year
  Sex: Female
  Weight: 68.03 kg

DRUGS (2)
  1. YAZ [Suspect]
     Indication: CONTRACEPTION
     Dosage: UNK
     Dates: start: 20041002, end: 20061011
  2. ALEVE [Concomitant]
     Dosage: UNK
     Dates: start: 1991

REACTIONS (10)
  - Cholecystectomy [None]
  - Cholecystitis chronic [None]
  - Pancreatitis [None]
  - Injury [None]
  - Emotional distress [None]
  - Depression [None]
  - Fear of death [None]
  - Nervousness [None]
  - Chest pain [None]
  - Abdominal pain upper [None]
